FAERS Safety Report 5402863-X (Version None)
Quarter: 2007Q3

REPORT INFORMATION
  Report Type: 
  Country: None (occurrence: None)
  Receive Date: 20070801
  Receipt Date: 20070723
  Transmission Date: 20080115
  Serious: Yes (Hospitalization)
  Sender: FDA-Public Use
  Company Number: SA-ABBOTT-07P-259-0369321-00

PATIENT
  Age: 65 Year
  Sex: Female
  Weight: 68 kg

DRUGS (8)
  1. HUMIRA [Suspect]
     Indication: RHEUMATOID ARTHRITIS
     Route: 058
     Dates: start: 20070421, end: 20070509
  2. METHOTREXATE [Concomitant]
     Indication: RHEUMATOID ARTHRITIS
     Route: 048
  3. PREDNISOLONE [Concomitant]
     Indication: RHEUMATOID ARTHRITIS
     Route: 048
     Dates: start: 20040101
  4. DICLOFENAC SODIUM [Concomitant]
     Indication: RHEUMATOID ARTHRITIS
     Route: 048
     Dates: start: 20040101
  5. DICLOFENAC SODIUM [Concomitant]
  6. OMEPRAZOLE [Concomitant]
     Indication: PROPHYLAXIS
  7. CORTIZONE [Concomitant]
     Indication: DRUG USE FOR UNKNOWN INDICATION
  8. ALFACALCIDOL [Concomitant]
     Indication: DRUG USE FOR UNKNOWN INDICATION
     Route: 048

REACTIONS (1)
  - ABSCESS LIMB [None]
